FAERS Safety Report 23724631 (Version 1)
Quarter: 2024Q2

REPORT INFORMATION
  Report Type: Spontaneous
  Country: US (occurrence: US)
  Receive Date: 20240409
  Receipt Date: 20240409
  Transmission Date: 20240716
  Serious: No
  Sender: FDA-Public Use
  Company Number: US-FOUNDATIONCONSUMERHC-2023-US-041219

PATIENT
  Age: 29 Year
  Sex: Female
  Weight: 105.69 kg

DRUGS (3)
  1. PLAN B ONE-STEP [Suspect]
     Active Substance: LEVONORGESTREL
     Indication: Post coital contraception
     Dosage: 1 DOSE
     Route: 048
     Dates: start: 20231204, end: 20231204
  2. PROGESTERONE [Concomitant]
     Active Substance: PROGESTERONE
     Dosage: 10 MG
  3. PHENTERMINE [Concomitant]
     Active Substance: PHENTERMINE

REACTIONS (1)
  - Weight loss poor [Not Recovered/Not Resolved]

NARRATIVE: CASE EVENT DATE: 20231205
